FAERS Safety Report 4558010-X (Version None)
Quarter: 2005Q1

REPORT INFORMATION
  Report Type: 
  Country: None (occurrence: None)
  Receive Date: 20050121
  Receipt Date: 20040302
  Transmission Date: 20050727
  Serious: No
  Sender: FDA-Public Use
  Company Number: US-BRISTOL-MYERS SQUIBB COMPANY-12584439

PATIENT
  Sex: Male

DRUGS (1)
  1. SERZONE [Suspect]
     Dates: start: 20011002

REACTIONS (1)
  - INJURY [None]
